FAERS Safety Report 16628841 (Version 1)
Quarter: 2019Q3

REPORT INFORMATION
  Report Type: Spontaneous
  Country: US (occurrence: US)
  Receive Date: 20190725
  Receipt Date: 20190725
  Transmission Date: 20191004
  Serious: No
  Sender: FDA-Public Use
  Company Number: US-VIFOR (INTERNATIONAL) INC.-VIT-2019-06461

PATIENT
  Age: 58 Year
  Sex: Male

DRUGS (3)
  1. VELTASSA [Suspect]
     Active Substance: PATIROMER
     Indication: HYPERKALAEMIA
  2. VELTASSA [Suspect]
     Active Substance: PATIROMER
  3. VELTASSA [Suspect]
     Active Substance: PATIROMER

REACTIONS (1)
  - Drug ineffective [Unknown]
